FAERS Safety Report 5790107-9 (Version None)
Quarter: 2008Q2

REPORT INFORMATION
  Report Type: 
  Country: None (occurrence: None)
  Receive Date: 20080626
  Receipt Date: 20080318
  Transmission Date: 20081010
  Serious: No
  Sender: FDA-Public Use
  Company Number: A0675529A

PATIENT

DRUGS (2)
  1. ALLI [Suspect]
  2. VITAMIN TAB [Concomitant]

REACTIONS (8)
  - ABDOMINAL DISTENSION [None]
  - BACK PAIN [None]
  - CONSTIPATION [None]
  - DRUG INEFFECTIVE [None]
  - FATIGUE [None]
  - HEADACHE [None]
  - HYPOVITAMINOSIS [None]
  - THERAPEUTIC RESPONSE UNEXPECTED [None]
